FAERS Safety Report 22066665 (Version 2)
Quarter: 2023Q1

REPORT INFORMATION
  Report Type: Spontaneous
  Country: JP (occurrence: JP)
  Receive Date: 20230306
  Receipt Date: 20230317
  Transmission Date: 20230417
  Serious: Yes (Hospitalization)
  Sender: FDA-Public Use
  Company Number: JP-TEVA-2023-JP-2864232

PATIENT
  Age: 80 Year
  Sex: Male

DRUGS (5)
  1. PITAVASTATIN [Interacting]
     Active Substance: PITAVASTATIN
     Indication: Dyslipidaemia
     Route: 065
  2. NIFEDIPINE [Interacting]
     Active Substance: NIFEDIPINE
     Indication: Hypertension
     Route: 065
  3. AZILSARTAN KAMEDOXOMIL [Interacting]
     Active Substance: AZILSARTAN KAMEDOXOMIL
     Indication: Hypertension
     Route: 065
  4. FEBUXOSTAT [Interacting]
     Active Substance: FEBUXOSTAT
     Indication: Hyperuricaemia
     Route: 065
  5. MIZORIBINE [Interacting]
     Active Substance: MIZORIBINE
     Indication: Glomerulonephritis membranous
     Dosage: 100 MILLIGRAM DAILY;
     Route: 048
     Dates: start: 201707

REACTIONS (4)
  - Fanconi syndrome acquired [Recovering/Resolving]
  - Acute kidney injury [Recovering/Resolving]
  - Drug interaction [Unknown]
  - Off label use [Unknown]

NARRATIVE: CASE EVENT DATE: 20170701
